FAERS Safety Report 5987380-0 (Version None)
Quarter: 2008Q4

REPORT INFORMATION
  Report Type: 
  Country: None (occurrence: None)
  Receive Date: 20081209
  Receipt Date: 20081203
  Transmission Date: 20090506
  Serious: Yes (Other)
  Sender: FDA-Public Use
  Company Number: PHHY2008DE16924

PATIENT

DRUGS (2)
  1. RASILEZ [Suspect]
     Dosage: UNK
     Dates: start: 20080612
  2. BETA BLOCKING AGENTS [Suspect]

REACTIONS (1)
  - PSORIASIS [None]
